FAERS Safety Report 11450216 (Version 1)
Quarter: 2015Q3

REPORT INFORMATION
  Report Type: Spontaneous
  Country: US (occurrence: US)
  Receive Date: 20150903
  Receipt Date: 20150903
  Transmission Date: 20151125
  Serious: No
  Sender: FDA-Public Use
  Company Number: US-ROCHE-1049022

PATIENT
  Sex: Male

DRUGS (3)
  1. RIBASPHERE [Suspect]
     Active Substance: RIBAVIRIN
     Indication: HEPATITIS C
     Dosage: DIVIDED DOSES
     Route: 048
  2. TELAPREVIR [Suspect]
     Active Substance: TELAPREVIR
     Indication: HEPATITIS C
     Route: 065
     Dates: start: 20120201, end: 20120424
  3. PEGASYS [Suspect]
     Active Substance: PEGINTERFERON ALFA-2A
     Indication: HEPATITIS C
     Route: 058

REACTIONS (10)
  - Pruritus [Unknown]
  - Malaise [Unknown]
  - Dysgeusia [Unknown]
  - Red blood cell count decreased [Unknown]
  - Cognitive disorder [Unknown]
  - Platelet count decreased [Unknown]
  - Poor quality sleep [Unknown]
  - White blood cell count decreased [Unknown]
  - Haemoglobin decreased [Unknown]
  - Rash [Unknown]
